FAERS Safety Report 4707911-8 (Version None)
Quarter: 2005Q3

REPORT INFORMATION
  Report Type: 
  Country: None (occurrence: None)
  Receive Date: 20050705
  Receipt Date: 20050705
  Transmission Date: 20060218
  Serious: Yes (Other)
  Sender: FDA-Public Use
  Company Number: None

PATIENT
  Sex: Male
  Weight: 74.3899 kg

DRUGS (3)
  1. PROPRANOLOL HCL [Suspect]
     Indication: PALPITATIONS
     Dosage: 20MG BID-TID ORAL
     Route: 048
  2. PROPRANOLOL HCL [Suspect]
     Indication: TREMOR
     Dosage: 20MG BID-TID ORAL
     Route: 048
  3. INDERAL [Concomitant]

REACTIONS (3)
  - PALPITATIONS [None]
  - PHARMACEUTICAL PRODUCT COMPLAINT [None]
  - TREMOR [None]
